FAERS Safety Report 5611850-8 (Version None)
Quarter: 2008Q1

REPORT INFORMATION
  Report Type: 
  Country: None (occurrence: None)
  Receive Date: 20080128
  Receipt Date: 20080116
  Transmission Date: 20080703
  Serious: Yes (Hospitalization)
  Sender: FDA-Public Use
  Company Number: S08-FRA-00228-01

PATIENT
  Age: 84 Year
  Sex: Female

DRUGS (2)
  1. MEMANTINE HCL [Suspect]
     Indication: DEMENTIA ALZHEIMER'S TYPE
     Dates: end: 20080115
  2. ARICEPT [Concomitant]

REACTIONS (2)
  - HAEMORRHAGIC STROKE [None]
  - HEMIPLEGIA [None]
